FAERS Safety Report 13710269 (Version 1)
Quarter: 2017Q3

REPORT INFORMATION
  Report Type: Spontaneous
  Country: US (occurrence: US)
  Receive Date: 20170703
  Receipt Date: 20170703
  Transmission Date: 20171127
  Serious: Yes (Hospitalization)
  Sender: FDA-Public Use
  Company Number: US-AUROBINDO-AUR-APL-2017-36220

PATIENT
  Age: 20 Year
  Sex: Female

DRUGS (4)
  1. IBUPROFEN. [Suspect]
     Active Substance: IBUPROFEN
     Indication: OROPHARYNGEAL PAIN
     Route: 065
  2. AZITHROMYCIN ANHYDROUS. [Suspect]
     Active Substance: AZITHROMYCIN ANHYDROUS
     Indication: PYREXIA
  3. AZITHROMYCIN ANHYDROUS. [Suspect]
     Active Substance: AZITHROMYCIN ANHYDROUS
     Indication: OROPHARYNGEAL PAIN
     Dosage: UNK
     Route: 065
     Dates: start: 20081009
  4. AZITHROMYCIN ANHYDROUS. [Suspect]
     Active Substance: AZITHROMYCIN ANHYDROUS
     Indication: COUGH

REACTIONS (18)
  - Vanishing bile duct syndrome [Unknown]
  - Respiratory arrest [Unknown]
  - Rash generalised [Unknown]
  - Cardiac arrest [Unknown]
  - Drug-induced liver injury [Unknown]
  - Dysphagia [Unknown]
  - Splenomegaly [Unknown]
  - Pneumothorax [Unknown]
  - Jaundice [Unknown]
  - Hepatomegaly [Unknown]
  - Respiratory failure [Unknown]
  - Hepatitis [Unknown]
  - Pyrexia [Unknown]
  - Hepatitis cholestatic [Unknown]
  - Oropharyngeal pain [Unknown]
  - Blister [Unknown]
  - Toxic epidermal necrolysis [Unknown]
  - Condition aggravated [Unknown]
